FAERS Safety Report 13131008 (Version 3)
Quarter: 2018Q2

REPORT INFORMATION
  Report Type: Spontaneous
  Country: CH (occurrence: CH)
  Receive Date: 20170119
  Receipt Date: 20180405
  Transmission Date: 20180711
  Serious: Yes (Hospitalization)
  Sender: FDA-Public Use
  Company Number: CH-JNJFOC-20170114035

PATIENT
  Age: 87 Year
  Sex: Female

DRUGS (13)
  1. INFLUENZA VACCINE [Suspect]
     Active Substance: INFLUENZA VIRUS VACCINE
     Indication: PRODUCT USED FOR UNKNOWN INDICATION
     Route: 065
     Dates: start: 201611
  2. VANCOMYCINE PCH [Interacting]
     Active Substance: VANCOMYCIN
     Indication: PRODUCT USED FOR UNKNOWN INDICATION
     Route: 041
     Dates: start: 20161212, end: 20161213
  3. NEXIUM [Concomitant]
     Active Substance: ESOMEPRAZOLE MAGNESIUM
     Route: 065
     Dates: start: 20161208, end: 20161213
  4. VANCOMYCINE PCH [Interacting]
     Active Substance: VANCOMYCIN
     Indication: PRODUCT USED FOR UNKNOWN INDICATION
     Route: 041
     Dates: start: 20161211, end: 20161211
  5. LASIX [Concomitant]
     Active Substance: FUROSEMIDE
     Dosage: DOSE: UNKNOWN
     Route: 065
  6. POTASSIUM CHLORIDE. [Interacting]
     Active Substance: POTASSIUM CHLORIDE
     Indication: PRODUCT USED FOR UNKNOWN INDICATION
     Route: 041
     Dates: start: 20161212, end: 20161214
  7. BELOC-ZOK COMP [Concomitant]
     Active Substance: HYDROCHLOROTHIAZIDE\METOPROLOL SUCCINATE
     Route: 065
  8. CEFUROXIME. [Suspect]
     Active Substance: CEFUROXIME
     Indication: PRODUCT USED FOR UNKNOWN INDICATION
     Route: 065
     Dates: end: 20161204
  9. ZANIDIP [Concomitant]
     Active Substance: LERCANIDIPINE HYDROCHLORIDE
     Dosage: DOSE: UNKNOWN
     Route: 065
  10. CLARITHROMYCIN. [Interacting]
     Active Substance: CLARITHROMYCIN
     Indication: PRODUCT USED FOR UNKNOWN INDICATION
     Dosage: DOSAGE: UNKNOWN
     Route: 048
     Dates: start: 20161212, end: 20161213
  11. DAFALGAN [Concomitant]
     Active Substance: ACETAMINOPHEN
     Dosage: DOSE: UNKNOWN
     Route: 065
  12. XARELTO [Suspect]
     Active Substance: RIVAROXABAN
     Indication: ATRIAL FIBRILLATION
     Route: 048
     Dates: start: 201612, end: 20161212
  13. NEO-MERCAZOLE [Suspect]
     Active Substance: CARBIMAZOLE
     Indication: PRODUCT USED FOR UNKNOWN INDICATION
     Route: 048
     Dates: end: 20161216

REACTIONS (5)
  - Hypersensitivity vasculitis [Recovered/Resolved]
  - Skin necrosis [Not Recovered/Not Resolved]
  - Pleural effusion [Recovered/Resolved]
  - Purpura [Recovered/Resolved]
  - Haematoma [Recovered/Resolved]

NARRATIVE: CASE EVENT DATE: 20161204
